FAERS Safety Report 5830663-5 (Version None)
Quarter: 2008Q3

REPORT INFORMATION
  Report Type: 
  Country: None (occurrence: None)
  Receive Date: 20080801
  Receipt Date: 20070924
  Transmission Date: 20090109
  Serious: Yes (Other)
  Sender: FDA-Public Use
  Company Number: US-BRISTOL-MYERS SQUIBB COMPANY-13917463

PATIENT
  Age: 82 Year
  Sex: Female
  Weight: 63 kg

DRUGS (2)
  1. COUMADIN [Suspect]
     Indication: THROMBOSIS
     Dosage: FOR THE PAST THREE WEEKS.
     Route: 048
  2. ZOCOR [Concomitant]

REACTIONS (4)
  - DIZZINESS [None]
  - FACIAL PALSY [None]
  - HEADACHE [None]
  - PARAESTHESIA [None]
